FAERS Safety Report 6781335-4 (Version None)
Quarter: 2010Q2

REPORT INFORMATION
  Report Type: 
  Country: None (occurrence: None)
  Receive Date: 20100621
  Receipt Date: 20100614
  Transmission Date: 20101027
  Serious: Yes (Hospitalization, Other)
  Sender: FDA-Public Use
  Company Number: US-SANOFI-AVENTIS-2010SA035183

PATIENT
  Age: 61 Year
  Sex: Male

DRUGS (15)
  1. PLAVIX [Suspect]
     Indication: MYOCARDIAL INFARCTION
     Route: 048
     Dates: start: 20100607, end: 20100607
  2. PLAVIX [Suspect]
     Route: 048
     Dates: start: 20100607, end: 20100607
  3. PLAVIX [Suspect]
     Route: 048
     Dates: start: 20100610
  4. PLAVIX [Suspect]
     Route: 048
     Dates: start: 20100610
  5. PLAVIX [Suspect]
     Route: 048
     Dates: start: 20100608, end: 20100610
  6. PLAVIX [Suspect]
     Route: 048
     Dates: start: 20100608, end: 20100610
  7. REOPRO [Suspect]
     Route: 051
     Dates: start: 20100607
  8. HEPARIN [Suspect]
     Route: 051
  9. ASPIRIN [Suspect]
     Route: 065
     Dates: end: 20100607
  10. ASPIRIN [Suspect]
     Route: 065
     Dates: start: 20100607
  11. ZOCOR [Suspect]
     Route: 048
     Dates: start: 20100601, end: 20100601
  12. LISINOPRIL [Concomitant]
  13. GLIPIZIDE [Concomitant]
  14. PEPCID [Concomitant]
  15. AMIODARONE [Concomitant]
     Route: 051
     Dates: start: 20100601

REACTIONS (8)
  - CARDIAC ARREST [None]
  - HEPARIN-INDUCED THROMBOCYTOPENIA [None]
  - HEPATIC ENZYME INCREASED [None]
  - OVERDOSE [None]
  - PLATELET COUNT DECREASED [None]
  - PLATELET DISORDER [None]
  - TORSADE DE POINTES [None]
  - VENTRICULAR ARRHYTHMIA [None]
